FAERS Safety Report 22209415 (Version 1)
Quarter: 2023Q2

REPORT INFORMATION
  Report Type: Report from Study
  Country: US (occurrence: US)
  Receive Date: 20230414
  Receipt Date: 20230414
  Transmission Date: 20230722
  Serious: No
  Sender: FDA-Public Use
  Company Number: US-ACADIA PHARMACEUTICALS INC.-ACA-2023-PIM-001115

PATIENT
  Sex: Male

DRUGS (14)
  1. NUPLAZID [Suspect]
     Active Substance: PIMAVANSERIN TARTRATE
     Indication: Parkinson^s disease psychosis
     Dosage: 34 MILLIGRAM, QD
     Route: 048
  2. NIFEDIPINE [Concomitant]
     Active Substance: NIFEDIPINE
  3. CLOPIDOGREL [Concomitant]
     Active Substance: CLOPIDOGREL BISULFATE
  4. PANTOPRAZOLE [Concomitant]
     Active Substance: PANTOPRAZOLE
  5. CELEBREX [Concomitant]
     Active Substance: CELECOXIB
  6. ATORVASTATIN [Concomitant]
     Active Substance: ATORVASTATIN
  7. TAMSULOSIN [Concomitant]
     Active Substance: TAMSULOSIN
  8. FINASTERIDE [Concomitant]
     Active Substance: FINASTERIDE
  9. NEBIVOLOL [Concomitant]
     Active Substance: NEBIVOLOL
  10. QUETIAPINE [Concomitant]
     Active Substance: QUETIAPINE
  11. SERTRALINE [Concomitant]
     Active Substance: SERTRALINE HYDROCHLORIDE
  12. DONEPEZIL [Concomitant]
     Active Substance: DONEPEZIL
  13. MYRBETRIQ [Concomitant]
     Active Substance: MIRABEGRON
  14. METHOTREXATE SODIUM [Concomitant]
     Active Substance: METHOTREXATE SODIUM

REACTIONS (1)
  - Cardiac operation [Unknown]
